FAERS Safety Report 6687070-5 (Version None)
Quarter: 2010Q2

REPORT INFORMATION
  Report Type: 
  Country: None (occurrence: None)
  Receive Date: 20100419
  Receipt Date: 20100409
  Transmission Date: 20101027
  Serious: Yes (Other)
  Sender: FDA-Public Use
  Company Number: NO-PFIZER INC-2010012114

PATIENT
  Age: 60 Year
  Sex: Female

DRUGS (2)
  1. NORVASC [Suspect]
     Indication: HYPERTENSION
     Dates: end: 20091005
  2. COAPROVEL [Concomitant]
     Indication: HYPERTENSION

REACTIONS (2)
  - LEUKOPENIA [None]
  - NEUTROPENIA [None]
